FAERS Safety Report 9437506 (Version 3)
Quarter: 2013Q3

REPORT INFORMATION
  Report Type: Spontaneous
  Country: DE (occurrence: DE)
  Receive Date: 20130802
  Receipt Date: 20130820
  Transmission Date: 20140515
  Serious: Yes (Other)
  Sender: FDA-Public Use
  Company Number: DE-JNJFOC-20130717192

PATIENT
  Age: 58 Year
  Sex: Female
  Weight: 57 kg

DRUGS (1)
  1. SIMPONI [Suspect]
     Indication: PSORIATIC ARTHROPATHY
     Route: 058
     Dates: start: 200912, end: 201205

REACTIONS (6)
  - Laryngitis [Unknown]
  - Blepharitis [Unknown]
  - Gastrooesophageal reflux disease [Unknown]
  - Cardiac failure [Unknown]
  - Keratitis [Unknown]
  - Aspartate aminotransferase increased [Unknown]
